FAERS Safety Report 4437008-6 (Version None)
Quarter: 2004Q3

REPORT INFORMATION
  Report Type: 
  Country: None (occurrence: None)
  Receive Date: 20040827
  Receipt Date: 20040813
  Transmission Date: 20050211
  Serious: Yes (Hospitalization)
  Sender: FDA-Public Use
  Company Number: 139835USA

PATIENT
  Sex: Female

DRUGS (1)
  1. PROPOFOL [Suspect]

REACTIONS (5)
  - CARPAL TUNNEL SYNDROME [None]
  - EXTRAVASATION [None]
  - IATROGENIC INJURY [None]
  - PROCEDURAL COMPLICATION [None]
  - SWELLING [None]
